FAERS Safety Report 24232337 (Version 2)
Quarter: 2024Q3

REPORT INFORMATION
  Report Type: Report from Study
  Country: ZA (occurrence: ZA)
  Receive Date: 20240821
  Receipt Date: 20240902
  Transmission Date: 20241017
  Serious: Yes (Other)
  Sender: REGENERON
  Company Number: ZA-BAYER-2024A118144

PATIENT
  Sex: Male

DRUGS (1)
  1. EYLEA [Suspect]
     Active Substance: AFLIBERCEPT
     Indication: Neovascular age-related macular degeneration
     Dosage: 1 X VIAL; SOLUTION FOR INJECTION; 40 MG/ML
     Dates: start: 20221013

REACTIONS (1)
  - Eye infection [Not Recovered/Not Resolved]
